FAERS Safety Report 8165833-7 (Version None)
Quarter: 2012Q1

REPORT INFORMATION
  Report Type: 
  Country: None (occurrence: None)
  Receive Date: 20120223
  Receipt Date: 20120223
  Transmission Date: 20120608
  Serious: Yes (Life-Threatening)
  Sender: FDA-Public Use
  Company Number: None

PATIENT
  Age: 14 Year
  Sex: Male
  Weight: 106.5953 kg

DRUGS (1)
  1. COPAXONE [Suspect]
     Indication: MULTIPLE SCLEROSIS
     Dosage: 20 MG. ONCE A DAY VARIOUS
     Dates: start: 20110501, end: 20120101

REACTIONS (8)
  - CHEST PAIN [None]
  - DYSPNOEA [None]
  - ASTHENIA [None]
  - FATIGUE [None]
  - SKIN DISCOLOURATION [None]
  - ERYTHEMA [None]
  - PAIN IN EXTREMITY [None]
  - APHASIA [None]
